FAERS Safety Report 9432931 (Version 1)
Quarter: 2013Q3

REPORT INFORMATION
  Report Type: Spontaneous
  Country: GB (occurrence: None)
  Receive Date: 20130729
  Receipt Date: 20130729
  Transmission Date: 20140515
  Serious: Yes (Other)
  Sender: FDA-Public Use
  Company Number: AUR-APL-2013-06060

PATIENT
  Age: 55 Year
  Sex: Female
  Weight: 60.32 kg

DRUGS (2)
  1. SERTRALINE [Suspect]
     Indication: ANXIETY
     Route: 048
  2. SERTRALINE (SERTRALINE) [Concomitant]

REACTIONS (2)
  - Food interaction [None]
  - Migraine [None]
